FAERS Safety Report 6234859-2 (Version None)
Quarter: 2009Q2

REPORT INFORMATION
  Report Type: 
  Country: None (occurrence: None)
  Receive Date: 20090618
  Receipt Date: 20090611
  Transmission Date: 20091009
  Serious: Yes (Other)
  Sender: FDA-Public Use
  Company Number: US-ASTRAZENECA-2009UW07077

PATIENT
  Age: 80 Year
  Sex: Male

DRUGS (2)
  1. CRESTOR [Suspect]
     Route: 048
     Dates: end: 20090309
  2. CRESTOR [Suspect]
     Route: 048
     Dates: start: 20070301

REACTIONS (10)
  - ABDOMINAL PAIN [None]
  - ARTHRALGIA [None]
  - ASTHENIA [None]
  - BACK PAIN [None]
  - BLOOD GLUCOSE INCREASED [None]
  - CONSTIPATION [None]
  - HYPERPALLAESTHESIA [None]
  - MYALGIA [None]
  - NAUSEA [None]
  - SLEEP DISORDER [None]
